FAERS Safety Report 25732008 (Version 2)
Quarter: 2025Q3

REPORT INFORMATION
  Report Type: Report from Study
  Country: CA (occurrence: CA)
  Receive Date: 20250827
  Receipt Date: 20250918
  Transmission Date: 20251020
  Serious: Yes (Other)
  Sender: TAKEDA
  Company Number: CA-TAKEDA-2025TUS074107

PATIENT
  Sex: Male

DRUGS (5)
  1. VEDOLIZUMAB [Suspect]
     Active Substance: VEDOLIZUMAB
     Indication: Colitis ulcerative
  2. VEDOLIZUMAB [Suspect]
     Active Substance: VEDOLIZUMAB
     Indication: Colitis ulcerative
     Dosage: 108 MILLIGRAM, Q2WEEKS
     Dates: start: 20240411
  3. PENTASA [Concomitant]
     Active Substance: MESALAMINE
  4. MESALAMINE [Concomitant]
     Active Substance: MESALAMINE
  5. IMURAN [Concomitant]
     Active Substance: AZATHIOPRINE

REACTIONS (6)
  - Haematochezia [Unknown]
  - Treatment failure [Not Recovered/Not Resolved]
  - Ulcer [Unknown]
  - Rectal discharge [Unknown]
  - Gastrointestinal pain [Unknown]
  - Abnormal faeces [Unknown]
